FAERS Safety Report 7598446-6 (Version None)
Quarter: 2011Q3

REPORT INFORMATION
  Report Type: 
  Country: None (occurrence: None)
  Receive Date: 20110708
  Receipt Date: 20110705
  Transmission Date: 20111222
  Serious: Yes (Life-Threatening)
  Sender: FDA-Public Use
  Company Number: GB-MERCK-1107GBR00026

PATIENT
  Age: 85 Year
  Sex: Male
  Weight: 89 kg

DRUGS (11)
  1. ATENOLOL [Concomitant]
     Route: 065
  2. HYDROXYCHLOROQUINE SULFATE [Concomitant]
     Route: 065
  3. FOSAMAX [Suspect]
     Indication: OSTEOPOROSIS
     Route: 048
     Dates: start: 20050210, end: 20110323
  4. AMLODIPINE [Concomitant]
     Route: 065
  5. LANSOPRAZOLE [Concomitant]
     Route: 065
  6. PREDNISOLONE [Concomitant]
     Route: 065
  7. CALCIUM CARBONATE AND CHOLECALCIFEROL [Concomitant]
     Route: 065
  8. ACETAMINOPHEN AND CODEINE PHOSPHATE [Concomitant]
     Route: 065
  9. NAPROXEN [Concomitant]
     Route: 065
  10. FOLIC ACID [Concomitant]
     Route: 065
  11. METHOTREXATE [Concomitant]
     Route: 065

REACTIONS (1)
  - OESOPHAGEAL CARCINOMA [None]
